FAERS Safety Report 10185818 (Version 2)
Quarter: 2014Q2

REPORT INFORMATION
  Report Type: Spontaneous
  Country: US (occurrence: US)
  Receive Date: 20140521
  Receipt Date: 20140620
  Transmission Date: 20141212
  Serious: Yes (Hospitalization)
  Sender: FDA-Public Use
  Company Number: US-INCYTE CORPORATION-2014IN001293

PATIENT
  Sex: Male

DRUGS (11)
  1. JAKAFI [Suspect]
     Indication: MYELOFIBROSIS
     Dosage: 10 MG, BID
     Route: 048
     Dates: start: 201305
  2. FUROSEMIDE [Concomitant]
  3. COUMADIN                           /00014802/ [Concomitant]
  4. MEGESTROL [Concomitant]
  5. PRILOSEC                           /00661201/ [Concomitant]
  6. ALOPURINOL [Concomitant]
  7. DIPHENOXYLATE/ATROPINE [Concomitant]
  8. PEPTO BISMOL                       /00139305/ [Concomitant]
  9. TYLENOL PM [Concomitant]
  10. PROCRIT                            /00909301/ [Concomitant]
  11. PROAIR                             /00139502/ [Concomitant]

REACTIONS (2)
  - Pain [Unknown]
  - Blood potassium increased [Unknown]
